FAERS Safety Report 24118661 (Version 2)
Quarter: 2024Q3

REPORT INFORMATION
  Report Type: Report from Study
  Country: RO (occurrence: RO)
  Receive Date: 20240722
  Receipt Date: 20240919
  Transmission Date: 20241017
  Serious: Yes (Hospitalization)
  Sender: ROCHE
  Company Number: RO-ROCHE-10000021272

PATIENT
  Age: 56 Year
  Sex: Female
  Weight: 77 kg

DRUGS (3)
  1. TOCILIZUMAB [Suspect]
     Active Substance: TOCILIZUMAB
     Indication: Rheumatoid arthritis
     Route: 050
  2. TOCILIZUMAB [Suspect]
     Active Substance: TOCILIZUMAB
     Indication: Polyarthritis
     Dosage: 162 MG/0.9 ML*4 SYRINGES
     Route: 058
  3. MEDROL [METHYLPREDNISOLONE SODIUM PHOSPHATE] [Concomitant]
     Route: 065

REACTIONS (8)
  - Anaphylactic shock [Unknown]
  - Swelling [Unknown]
  - Rash macular [Unknown]
  - Rash macular [Unknown]
  - Pharyngeal swelling [Unknown]
  - Hot flush [Unknown]
  - Illness [Unknown]
  - Mass [Unknown]
